FAERS Safety Report 22614794 (Version 1)
Quarter: 2023Q2

REPORT INFORMATION
  Report Type: Spontaneous
  Country: US (occurrence: US)
  Receive Date: 20230619
  Receipt Date: 20230619
  Transmission Date: 20230722
  Serious: No
  Sender: FDA-Public Use
  Company Number: US-MICRO LABS LIMITED-ML2023-02542

PATIENT
  Age: 87 Year
  Sex: Male

DRUGS (2)
  1. DORZOLAMIDE [Suspect]
     Active Substance: DORZOLAMIDE
     Indication: Intraocular pressure test
     Dosage: DOSE: 1 DROP BOTH EYES
     Route: 047
     Dates: start: 202301
  2. DORZOLAMIDE [Suspect]
     Active Substance: DORZOLAMIDE
     Dosage: DOSE: 1 DROP BOTH EYES
     Route: 047
     Dates: start: 202303

REACTIONS (3)
  - Foreign body sensation in eyes [Unknown]
  - Vision blurred [Unknown]
  - Liquid product physical issue [Unknown]

NARRATIVE: CASE EVENT DATE: 20230301
